FAERS Safety Report 9234588 (Version 4)
Quarter: 2014Q1

REPORT INFORMATION
  Report Type: Spontaneous
  Country: US (occurrence: US)
  Receive Date: 20130416
  Receipt Date: 20140107
  Transmission Date: 20141002
  Serious: Yes (Death)
  Sender: FDA-Public Use
  Company Number: US-BRISTOL-MYERS SQUIBB COMPANY-18766139

PATIENT
  Age: 65 Year
  Sex: Female

DRUGS (4)
  1. BYETTA [Suspect]
     Indication: TYPE 2 DIABETES MELLITUS
     Dates: start: 200809, end: 200902
  2. JANUMET [Suspect]
     Indication: TYPE 2 DIABETES MELLITUS
     Dates: start: 200902, end: 201012
  3. JANUVIA [Suspect]
     Indication: TYPE 2 DIABETES MELLITUS
     Dates: start: 200807, end: 200809
  4. LANTUS [Suspect]

REACTIONS (1)
  - Pancreatic carcinoma [Fatal]
